FAERS Safety Report 16206585 (Version 4)
Quarter: 2019Q2

REPORT INFORMATION
  Report Type: Spontaneous
  Country: PL (occurrence: PL)
  Receive Date: 20190417
  Receipt Date: 20190426
  Transmission Date: 20190711
  Serious: Yes (Hospitalization, Other)
  Sender: FDA-Public Use
  Company Number: PHHY2019PL083225

PATIENT
  Age: 7 Year
  Sex: Male

DRUGS (6)
  1. METHYLPREDNISOLONE. [Concomitant]
     Active Substance: METHYLPREDNISOLONE
     Dosage: 1 MG/KG, ONCE/SINGLE
     Route: 042
  2. CICLOSPORIN [Suspect]
     Active Substance: CYCLOSPORINE
     Indication: COLITIS ULCERATIVE
     Dosage: 3 MG/KG, QD
     Route: 048
  3. PREDNISOLONE. [Concomitant]
     Active Substance: PREDNISOLONE
     Indication: COLITIS ULCERATIVE
     Dosage: 10 MG, QD
     Route: 042
  4. CICLOSPORIN [Suspect]
     Active Substance: CYCLOSPORINE
     Dosage: 2.5 MG/KG, QD
     Route: 042
  5. CASTOR OIL. [Suspect]
     Active Substance: CASTOR OIL
     Indication: COLITIS ULCERATIVE
     Dosage: UNK
     Route: 065
  6. METHYLPREDNISOLONE. [Concomitant]
     Active Substance: METHYLPREDNISOLONE
     Indication: COLITIS ULCERATIVE
     Dosage: 1 MG/KG, UNK (EVERY 3 DAYS)
     Route: 042

REACTIONS (7)
  - Abdominal pain [Recovered/Resolved]
  - Product use in unapproved indication [Unknown]
  - Urticaria [Recovered/Resolved]
  - Nausea [Recovered/Resolved]
  - Drug intolerance [Recovered/Resolved]
  - Hypersensitivity [Recovered/Resolved]
  - Blister [Recovered/Resolved]
